FAERS Safety Report 21224457 (Version 1)
Quarter: 2022Q3

REPORT INFORMATION
  Report Type: Report from Study
  Country: US (occurrence: US)
  Receive Date: 20220817
  Receipt Date: 20220817
  Transmission Date: 20221026
  Serious: Yes (Other)
  Sender: FDA-Public Use
  Company Number: US-ALLERGAN-2226856US

PATIENT
  Sex: Male

DRUGS (1)
  1. ATOGEPANT [Suspect]
     Active Substance: ATOGEPANT
     Indication: Product used for unknown indication
     Dosage: UNK
     Dates: start: 202204

REACTIONS (4)
  - Cerebrovascular accident [Recovering/Resolving]
  - Brain operation [Unknown]
  - Cerebral disorder [Unknown]
  - Headache [Unknown]

NARRATIVE: CASE EVENT DATE: 20220101
